FAERS Safety Report 7132698-1 (Version None)
Quarter: 2010Q4

REPORT INFORMATION
  Report Type: 
  Country: None (occurrence: None)
  Receive Date: 20101202
  Receipt Date: 20101123
  Transmission Date: 20110411
  Serious: Yes (Hospitalization)
  Sender: FDA-Public Use
  Company Number: GB-ASTRAZENECA-2010SE55712

PATIENT
  Age: 73 Year
  Sex: Female

DRUGS (7)
  1. OMEPRAZOLE [Suspect]
     Indication: DYSPEPSIA
     Route: 048
     Dates: end: 20100927
  2. ATENOLOL [Concomitant]
     Indication: HYPERTENSION
     Route: 048
  3. CANDESARTAN [Concomitant]
     Indication: HYPERTENSION
     Route: 048
  4. FELODIPINE [Concomitant]
     Indication: HYPERTENSION
     Route: 048
  5. FELODIPINE [Concomitant]
     Route: 048
  6. ROSUVASTATIN [Concomitant]
     Route: 048
  7. ROSUVASTATIN [Concomitant]
     Route: 048

REACTIONS (3)
  - HYPOAESTHESIA FACIAL [None]
  - HYPOCALCAEMIA [None]
  - HYPOMAGNESAEMIA [None]
